FAERS Safety Report 24526387 (Version 2)
Quarter: 2025Q3

REPORT INFORMATION
  Report Type: Report from Study
  Country: US (occurrence: US)
  Receive Date: 20241021
  Receipt Date: 20250809
  Transmission Date: 20251020
  Serious: Yes (Other)
  Sender: ALEXION PHARMACEUTICALS
  Company Number: US-AstraZeneca-CH-00714603A

PATIENT
  Sex: Female
  Weight: 59.874 kg

DRUGS (1)
  1. OSIMERTINIB [Suspect]
     Active Substance: OSIMERTINIB
     Indication: Lung neoplasm malignant
     Dosage: 80 MILLIGRAM, QD
     Dates: start: 202409

REACTIONS (5)
  - Malaise [Unknown]
  - Dyspepsia [Unknown]
  - Fatigue [Unknown]
  - Pain [Unknown]
  - Abdominal discomfort [Unknown]
